FAERS Safety Report 5446214-3 (Version None)
Quarter: 2007Q3

REPORT INFORMATION
  Report Type: 
  Country: None (occurrence: None)
  Receive Date: 20070907
  Receipt Date: 20070829
  Transmission Date: 20080115
  Serious: Yes (Death)
  Sender: FDA-Public Use
  Company Number: US-TYCO HEALTHCARE/MALLINCKRODT-T200701008

PATIENT

DRUGS (4)
  1. METHADOSE [Suspect]
  2. XANAX [Suspect]
  3. HYDROCODONE [Suspect]
  4. ETHANOL [Suspect]

REACTIONS (2)
  - DRUG TOXICITY [None]
  - UNRESPONSIVE TO STIMULI [None]
